FAERS Safety Report 10070954 (Version 3)
Quarter: 2015Q1

REPORT INFORMATION
  Report Type: Report from Study
  Country: FR (occurrence: FR)
  Receive Date: 20140410
  Receipt Date: 20150119
  Transmission Date: 20150720
  Serious: Yes (Hospitalization, Disabling)
  Sender: FDA-Public Use
  Company Number: PHHO2014FR001783

PATIENT
  Age: 9 Year
  Sex: Male
  Weight: 22.4 kg

DRUGS (5)
  1. CGP 57148B [Suspect]
     Active Substance: IMATINIB MESYLATE
     Dosage: UNK
     Route: 048
     Dates: start: 20140210
  2. CGP 57148B [Suspect]
     Active Substance: IMATINIB MESYLATE
     Indication: ACUTE LYMPHOCYTIC LEUKAEMIA
     Dosage: 300 MG, DAILY
     Route: 048
     Dates: start: 20130629, end: 20140121
  3. L-ASPARAGINASE [Suspect]
     Active Substance: ASPARAGINASE
     Indication: PRODUCT USED FOR UNKNOWN INDICATION
     Route: 065
  4. CGP 57148B [Suspect]
     Active Substance: IMATINIB MESYLATE
     Dosage: D36 PHASE IIB
     Route: 048
     Dates: start: 20140217
  5. GLUCOCORTICOIDS [Suspect]
     Active Substance: UNSPECIFIED INGREDIENT
     Indication: PRODUCT USED FOR UNKNOWN INDICATION
     Dosage: UNK
     Route: 065

REACTIONS (3)
  - Renal tubular disorder [Recovered/Resolved]
  - Hepatocellular injury [Recovered/Resolved]
  - Amyotrophy [Recovered/Resolved]

NARRATIVE: CASE EVENT DATE: 20140114
